FAERS Safety Report 5569303-1 (Version None)
Quarter: 2007Q4

REPORT INFORMATION
  Report Type: 
  Country: None (occurrence: None)
  Receive Date: 20071220
  Receipt Date: 20071212
  Transmission Date: 20080405
  Serious: Yes (Congenital Anomaly)
  Sender: FDA-Public Use
  Company Number: US-ALLERGAN-0709816US

PATIENT
  Sex: Female

DRUGS (2)
  1. PREVAGE MD [Suspect]
     Indication: PROPHYLAXIS
     Dosage: UNK, UNKNOWN
     Route: 061
     Dates: start: 20070101, end: 20070901
  2. PRENATAL VITAMINS [Concomitant]

REACTIONS (4)
  - ANTEPARTUM HAEMORRHAGE [None]
  - HYPERSENSITIVITY [None]
  - PREGNANCY [None]
  - SMALL FOR DATES BABY [None]
